FAERS Safety Report 7764112-7 (Version None)
Quarter: 2011Q3

REPORT INFORMATION
  Report Type: 
  Country: None (occurrence: None)
  Receive Date: 20110916
  Receipt Date: 20110901
  Transmission Date: 20111222
  Serious: Yes (Hospitalization)
  Sender: FDA-Public Use
  Company Number: 1000023249

PATIENT
  Age: 84 Year
  Sex: Female

DRUGS (9)
  1. MEMANTINE [Suspect]
     Indication: DEMENTIA ALZHEIMER'S TYPE
     Dosage: 5 MG (5 MG, 1 IN 1 D), ORAL  10 MG (10 MG, 1 IN 1 D), ORAL   15 MG  (15 MG, 1 IN 1 D), ORAL
     Route: 048
     Dates: start: 20110101, end: 20110101
  2. MEMANTINE [Suspect]
     Indication: DEMENTIA ALZHEIMER'S TYPE
     Dosage: 5 MG (5 MG, 1 IN 1 D), ORAL  10 MG (10 MG, 1 IN 1 D), ORAL   15 MG  (15 MG, 1 IN 1 D), ORAL
     Route: 048
     Dates: start: 20110101, end: 20110101
  3. MEMANTINE [Suspect]
     Indication: DEMENTIA ALZHEIMER'S TYPE
     Dosage: 5 MG (5 MG, 1 IN 1 D), ORAL  10 MG (10 MG, 1 IN 1 D), ORAL   15 MG  (15 MG, 1 IN 1 D), ORAL
     Route: 048
     Dates: start: 20110630, end: 20110101
  4. MEMANTINE [Suspect]
     Indication: DEMENTIA ALZHEIMER'S TYPE
     Dosage: 20 MG (20 MG, 1 IN 1 D), ORAL
     Route: 048
     Dates: start: 20110101, end: 20110730
  5. GLACTIV (SITAGLIPTIN PHOSPHATE MONOHYDRATE) (SITAGLIPTIN PHOSPHATE MON [Concomitant]
  6. LIVALO (PITAVASTATIN CALCIUM) (PITAVASTATIN CALCIUM) [Concomitant]
  7. OLMESARTAN MEDOXOMIL [Concomitant]
  8. NIFEDIPINE [Concomitant]
  9. LANSOPRAZOLE OD (LANSOPRAZOLE) (LANSOPRAZOLE) [Concomitant]

REACTIONS (4)
  - MALAISE [None]
  - ERYTHEMA [None]
  - ABNORMAL BEHAVIOUR [None]
  - RENAL IMPAIRMENT [None]
